FAERS Safety Report 7648124-X (Version None)
Quarter: 2011Q3

REPORT INFORMATION
  Report Type: 
  Country: None (occurrence: None)
  Receive Date: 20110801
  Receipt Date: 20110722
  Transmission Date: 20111222
  Serious: Yes (Other)
  Sender: FDA-Public Use
  Company Number: BR-ABBOTT-11P-020-0841099-00

PATIENT
  Sex: Female
  Weight: 42 kg

DRUGS (4)
  1. HUMIRA [Suspect]
     Indication: CROHN'S DISEASE
     Dosage: INDUCTION
     Dates: start: 20101101, end: 20101101
  2. HUMIRA [Suspect]
     Route: 058
     Dates: end: 20110101
  3. HUMIRA [Suspect]
     Dosage: INDUCTION DOSE
     Route: 058
     Dates: start: 20101116, end: 20101116
  4. AZATHIOPRINE [Concomitant]
     Indication: CROHN'S DISEASE
     Route: 048
     Dates: start: 20101101

REACTIONS (2)
  - INFLAMMATION [None]
  - ILEAL FISTULA [None]
